FAERS Safety Report 21338194 (Version 1)
Quarter: 2022Q3

REPORT INFORMATION
  Report Type: Spontaneous
  Country: US (occurrence: US)
  Receive Date: 20220915
  Receipt Date: 20220915
  Transmission Date: 20221027
  Serious: Yes (Other)
  Sender: FDA-Public Use
  Company Number: US-BIOVITRUM-2022US08825

PATIENT
  Age: 41 Year
  Sex: Female

DRUGS (2)
  1. KINERET [Suspect]
     Active Substance: ANAKINRA
     Indication: Juvenile idiopathic arthritis
     Dates: start: 201802
  2. KINERET [Suspect]
     Active Substance: ANAKINRA
     Indication: Still^s disease
     Dates: start: 20190405

REACTIONS (11)
  - Loss of consciousness [Unknown]
  - Respiratory tract congestion [Unknown]
  - SARS-CoV-2 test positive [Unknown]
  - Pain [Unknown]
  - Asthenia [Unknown]
  - Gait disturbance [Unknown]
  - Dizziness [Unknown]
  - Fatigue [Unknown]
  - Headache [Unknown]
  - Product storage error [Unknown]
  - Off label use [Unknown]

NARRATIVE: CASE EVENT DATE: 20180201
